FAERS Safety Report 25416591 (Version 5)
Quarter: 2025Q4

REPORT INFORMATION
  Report Type: Other
  Country: EU (occurrence: EU)
  Receive Date: 20250610
  Receipt Date: 20251124
  Transmission Date: 20260117
  Serious: Yes (Death, Life-Threatening, Hospitalization, Other)
  Sender: ZYDUS PHARM
  Company Number: EU-002147023-NVSC2025FR058462

PATIENT

DRUGS (26)
  1. METFORMIN [Suspect]
     Active Substance: METFORMIN HYDROCHLORIDE
     Indication: Diabetes mellitus
     Dosage: 2550 MILLIGRAM, QD
     Route: 048
  2. LETROZOLE [Suspect]
     Active Substance: LETROZOLE
     Indication: Intraductal proliferative breast lesion
     Dosage: 2.5 MG, QD (1 TABLET PER DAY)
     Route: 065
  3. LETROZOLE [Suspect]
     Active Substance: LETROZOLE
     Indication: Hormone therapy
  4. LETROZOLE [Suspect]
     Active Substance: LETROZOLE
     Indication: Breast cancer
  5. KISQALI [Suspect]
     Active Substance: RIBOCICLIB SUCCINATE
     Indication: Hormone receptor positive HER2 negative breast cancer
     Dosage: 600 MG, QD (600 MG, QD, START DATE 26-MAR-2025)
     Route: 048
     Dates: start: 20250326
  6. KISQALI [Suspect]
     Active Substance: RIBOCICLIB SUCCINATE
     Indication: Intraductal proliferative breast lesion
     Dosage: 600 MG, QD (600 MG, QD, START DATE 26-MAR-2025)
     Route: 048
     Dates: start: 20250331
  7. NOREPINEPHRINE BITARTRATE [Concomitant]
     Active Substance: NOREPINEPHRINE BITARTRATE
     Indication: Product used for unknown indication
     Dosage: UNK (FAST INCREASE UP TO 20 MG/H)
     Route: 065
  8. INSULIN HUMAN [Concomitant]
     Active Substance: INSULIN HUMAN
     Indication: Product used for unknown indication
     Dosage: UNK (VIA AN ELECTRONIC PUMP)
     Route: 065
  9. SPIRAMYCIN [Concomitant]
     Active Substance: SPIRAMYCIN
     Indication: Respiratory tract infection
     Dosage: UNK
     Route: 065
  10. SPIRAMYCIN [Concomitant]
     Active Substance: SPIRAMYCIN
     Dosage: UNK
     Route: 065
  11. SPIRAMYCIN [Concomitant]
     Active Substance: SPIRAMYCIN
     Dosage: UNK
     Route: 065
  12. SPIRAMYCIN [Concomitant]
     Active Substance: SPIRAMYCIN
     Dosage: UNK
     Route: 065
  13. SPIRAMYCIN [Concomitant]
     Active Substance: SPIRAMYCIN
     Dosage: UNK
     Route: 065
  14. SPIRAMYCIN [Concomitant]
     Active Substance: SPIRAMYCIN
     Dosage: UNK
     Route: 065
  15. AMIKACIN [Concomitant]
     Active Substance: AMIKACIN
     Indication: Product used for unknown indication
     Dosage: UNK
     Route: 065
  16. MIDAZOLAM HYDROCHLORIDE [Concomitant]
     Active Substance: MIDAZOLAM HYDROCHLORIDE
     Indication: Product used for unknown indication
     Dosage: UNK
     Route: 065
  17. OXAZEPAM [Concomitant]
     Active Substance: OXAZEPAM
     Indication: Anxiety
     Dosage: UNK
     Route: 065
  18. NICARDIPINE HYDROCHLORIDE [Concomitant]
     Active Substance: NICARDIPINE HYDROCHLORIDE
     Indication: Blood pressure increased
     Dosage: 100 MILLIGRAM
     Route: 048
  19. NICARDIPINE HYDROCHLORIDE [Concomitant]
     Active Substance: NICARDIPINE HYDROCHLORIDE
     Indication: Cardiac failure
  20. KERLONE [Concomitant]
     Active Substance: BETAXOLOL HYDROCHLORIDE
     Indication: Hypertension
     Dosage: 20 MG
     Route: 048
  21. IRBESARTAN [Concomitant]
     Active Substance: IRBESARTAN
     Indication: Hypertension
     Dosage: 150 MG
     Route: 048
  22. FUROSEMIDE [Concomitant]
     Active Substance: FUROSEMIDE
     Indication: Hypertension
     Dosage: 40 MG
     Route: 048
  23. FUROSEMIDE [Concomitant]
     Active Substance: FUROSEMIDE
     Indication: Cardiac failure
  24. DAPAGLIFLOZIN [Concomitant]
     Active Substance: DAPAGLIFLOZIN
     Indication: Diabetes mellitus
     Dosage: 10 MG
     Route: 065
  25. OMEPRAZOLE [Concomitant]
     Active Substance: OMEPRAZOLE
     Indication: Peptic ulcer
     Dosage: 20 MILLIGRAM
     Route: 048
  26. CHOLECALCIFEROL [Concomitant]
     Active Substance: CHOLECALCIFEROL
     Indication: Peptic ulcer
     Dosage: UNK, VIRAL
     Route: 048

REACTIONS (16)
  - Death [Fatal]
  - Diabetic ketoacidosis [Fatal]
  - Gastrointestinal disorder [Fatal]
  - Dyspnoea [Not Recovered/Not Resolved]
  - Metabolic acidosis [Fatal]
  - Acute kidney injury [Fatal]
  - Hyperlactacidaemia [Not Recovered/Not Resolved]
  - Nausea [Fatal]
  - Vomiting [Fatal]
  - Multiple organ dysfunction syndrome [Unknown]
  - Toxicity to various agents [Unknown]
  - Diarrhoea [Fatal]
  - Hypothermia [Recovering/Resolving]
  - Dyspepsia [Unknown]
  - Acetonaemia [Unknown]
  - Hypotension [Unknown]

NARRATIVE: CASE EVENT DATE: 20250330
